FAERS Safety Report 5443402-7 (Version None)
Quarter: 2007Q3

REPORT INFORMATION
  Report Type: 
  Country: None (occurrence: None)
  Receive Date: 20070905
  Receipt Date: 20070828
  Transmission Date: 20080115
  Serious: Yes (Hospitalization)
  Sender: FDA-Public Use
  Company Number: B0484161A

PATIENT
  Sex: Female

DRUGS (7)
  1. LANOXIN [Suspect]
     Indication: ATRIAL FIBRILLATION
     Route: 065
     Dates: start: 20070803
  2. METOPROLOL SUCCINATE [Concomitant]
     Dosage: 23.75G PER DAY
  3. ALENDRONATE SODIUM [Concomitant]
     Dosage: 70MG WEEKLY
  4. ASPIRIN [Concomitant]
     Dosage: 100MG PER DAY
  5. CALCIUM CARBONATE [Concomitant]
     Dosage: 1.25G ALTERNATE DAYS
  6. BENDROFLUAZIDE [Concomitant]
  7. MULTI-VITAMIN [Concomitant]

REACTIONS (2)
  - NECK MASS [None]
  - PHARYNGEAL OEDEMA [None]
